FAERS Safety Report 23708270 (Version 1)
Quarter: 2024Q2

REPORT INFORMATION
  Report Type: Spontaneous
  Country: US (occurrence: US)
  Receive Date: 20240404
  Receipt Date: 20240404
  Transmission Date: 20240716
  Serious: Yes (Other)
  Sender: FDA-Public Use
  Company Number: US-ABBVIE-5697701

PATIENT
  Age: 8 Year
  Sex: Female

DRUGS (1)
  1. DIVALPROEX SODIUM [Suspect]
     Active Substance: DIVALPROEX SODIUM
     Indication: Petit mal epilepsy
     Route: 048

REACTIONS (7)
  - Depressed level of consciousness [Unknown]
  - Disturbance in attention [Unknown]
  - Sedation [Unknown]
  - Fatigue [Unknown]
  - Anxiety [Unknown]
  - Disorientation [Unknown]
  - Drug ineffective [Unknown]
